FAERS Safety Report 25790891 (Version 2)
Quarter: 2025Q4

REPORT INFORMATION
  Report Type: Spontaneous
  Country: EU (occurrence: EU)
  Receive Date: 20250911
  Receipt Date: 20251008
  Transmission Date: 20260118
  Serious: Yes (Hospitalization)
  Sender: MUNDIPHARMA EDO
  Company Number: EU-NAPPMUNDI-GBR-2025-0128707

PATIENT
  Sex: Female

DRUGS (3)
  1. REZZAYO [Suspect]
     Active Substance: REZAFUNGIN
     Indication: Aspergillus infection
     Dosage: UNK
  2. REZZAYO [Suspect]
     Active Substance: REZAFUNGIN
     Dosage: UNK
  3. REZZAYO [Suspect]
     Active Substance: REZAFUNGIN
     Dosage: UNK

REACTIONS (2)
  - General physical health deterioration [Unknown]
  - Off label use [Unknown]

NARRATIVE: CASE EVENT DATE: 20250627
